FAERS Safety Report 8708223 (Version 2)
Quarter: 2012Q4

REPORT INFORMATION
  Report Type: 
  Country: ES (occurrence: ES)
  Receive Date: 20120806
  Receipt Date: 20120917
  Transmission Date: 20130627
  Serious: Yes (Other)
  Sender: FDA-Public Use
  Company Number: ES-MILLENNIUM PHARMACEUTICALS, INC.-2012-05251

PATIENT

DRUGS (4)
  1. VELCADE [Suspect]
     Indication: MULTIPLE MYELOMA
     Dosage: UNK
     Route: 065
     Dates: start: 20081103, end: 20110627
  2. OMEPRAZOLE [Concomitant]
  3. VALTREX [Concomitant]
  4. CALCIUM SANDOZ FORTE D [Concomitant]

REACTIONS (1)
  - Acute myeloid leukaemia [Not Recovered/Not Resolved]
